FAERS Safety Report 6290740-4 (Version None)
Quarter: 2009Q3

REPORT INFORMATION
  Report Type: 
  Country: None (occurrence: None)
  Receive Date: 20090730
  Receipt Date: 20090721
  Transmission Date: 20100115
  Serious: Yes (Hospitalization, Other)
  Sender: FDA-Public Use
  Company Number: US-AVENTIS-200916429US

PATIENT
  Sex: Male

DRUGS (2)
  1. LANTUS [Suspect]
     Route: 058
     Dates: start: 20090301
  2. OPTICLIK GREY [Suspect]
     Dates: start: 20090301

REACTIONS (2)
  - FALL [None]
  - WOUND INFECTION STAPHYLOCOCCAL [None]
